FAERS Safety Report 17376210 (Version 4)
Quarter: 2021Q1

REPORT INFORMATION
  Report Type: Spontaneous
  Country: EC (occurrence: EC)
  Receive Date: 20200206
  Receipt Date: 20210112
  Transmission Date: 20210419
  Serious: Yes (Death)
  Sender: FDA-Public Use
  Company Number: EC-ASTELLAS-2020US004517

PATIENT
  Age: 75 Year
  Sex: Male

DRUGS (6)
  1. BUPRENORFINE CF [Concomitant]
     Indication: PAIN
     Route: 065
     Dates: start: 201809
  2. LOSARTAN. [Concomitant]
     Active Substance: LOSARTAN
     Indication: HYPERTENSION
     Route: 048
     Dates: end: 20200105
  3. TAPENTADOL [Concomitant]
     Active Substance: TAPENTADOL
     Indication: PAIN
     Route: 065
     Dates: start: 201811, end: 20200105
  4. XTANDI [Suspect]
     Active Substance: ENZALUTAMIDE
     Indication: PROSTATE CANCER
     Route: 048
     Dates: start: 20190603, end: 20191202
  5. BUPRENORFINE CF [Concomitant]
     Dosage: 0.5 DF, EVERY 3 DAYS
     Route: 065
     Dates: start: 201908, end: 201912
  6. BUPRENORFINE CF [Concomitant]
     Route: 065
     Dates: start: 20200103

REACTIONS (5)
  - Performance status decreased [Fatal]
  - Pain [Unknown]
  - Therapy cessation [Unknown]
  - Product availability issue [Unknown]
  - Fall [Unknown]

NARRATIVE: CASE EVENT DATE: 201911
